FAERS Safety Report 13589481 (Version 2)
Quarter: 2017Q2

REPORT INFORMATION
  Report Type: Spontaneous
  Country: US (occurrence: US)
  Receive Date: 20170529
  Receipt Date: 20170612
  Transmission Date: 20170830
  Serious: No
  Sender: FDA-Public Use
  Company Number: US-009507513-1705USA000596

PATIENT
  Age: 44 Year
  Sex: Female

DRUGS (3)
  1. FOLLISTIM [Suspect]
     Active Substance: FOLLITROPIN
     Indication: ASSISTED FERTILISATION
     Dosage: 225 IU, ONCE DAILY
     Dates: start: 20170429
  2. FOLLITROPIN BETA [Suspect]
     Active Substance: FOLLITROPIN
     Indication: ASSISTED FERTILISATION
  3. FOLLISTIM [Suspect]
     Active Substance: FOLLITROPIN
     Indication: ASSISTED FERTILISATION

REACTIONS (4)
  - Device malfunction [Unknown]
  - Feeling abnormal [Not Recovered/Not Resolved]
  - Stress [Not Recovered/Not Resolved]
  - Incorrect dose administered [Unknown]

NARRATIVE: CASE EVENT DATE: 201704
